FAERS Safety Report 24167777 (Version 2)
Quarter: 2025Q1

REPORT INFORMATION
  Report Type: Spontaneous
  Country: US (occurrence: US)
  Receive Date: 20240802
  Receipt Date: 20250328
  Transmission Date: 20250409
  Serious: Yes (Other)
  Sender: PFIZER
  Company Number: US-PFIZER INC-PV202400082752

PATIENT
  Age: 59 Year
  Sex: Female

DRUGS (2)
  1. TUKYSA [Suspect]
     Active Substance: TUCATINIB
  2. TUKYSA [Suspect]
     Active Substance: TUCATINIB
     Dosage: 2 TABLETS OF 150MG TWICE DAILY
     Route: 048

REACTIONS (3)
  - Nephrolithiasis [Unknown]
  - Haematological infection [Unknown]
  - Malignant neoplasm progression [Not Recovered/Not Resolved]
